FAERS Safety Report 7121334-6 (Version None)
Quarter: 2010Q4

REPORT INFORMATION
  Report Type: 
  Country: None (occurrence: None)
  Receive Date: 20101124
  Receipt Date: 20101110
  Transmission Date: 20110411
  Serious: Yes (Hospitalization)
  Sender: FDA-Public Use
  Company Number: PHHY2010GR71873

PATIENT
  Sex: Male

DRUGS (5)
  1. RASILEZ HCT [Suspect]
     Indication: HYPERTENSION
     Dosage: 300/25 MG, UNK
     Dates: start: 20100801, end: 20101019
  2. RASILEZ HCT [Suspect]
     Dosage: 150/12.5 MG
  3. LIPITOR [Concomitant]
  4. CARVEPEN [Concomitant]
  5. ZARATOR [Concomitant]

REACTIONS (2)
  - ARRHYTHMIA [None]
  - RENIN INCREASED [None]
